FAERS Safety Report 6249957-7 (Version None)
Quarter: 2009Q2

REPORT INFORMATION
  Report Type: 
  Country: None (occurrence: None)
  Receive Date: 20090625
  Receipt Date: 20090611
  Transmission Date: 20091009
  Serious: Yes (Death, Other)
  Sender: FDA-Public Use
  Company Number: MC200900212

PATIENT

DRUGS (7)
  1. ANGIOMAX [Suspect]
     Indication: PERCUTANEOUS CORONARY INTERVENTION
     Dosage: 0.75 MG/KG, BOLUS, INTRAVENOUS, 1.75 MG/KG, HR
     Route: 042
  2. ABCIXIMAB (ABCIXIMAB) [Suspect]
     Indication: ANGIOGRAM
     Dosage: 0.25 MG/KG, BOLUS, INTRAVENOUS, 0.125 UG/KG, MIN
     Route: 042
  3. ABCIXIMAB (ABCIXIMAB) [Suspect]
     Indication: PROCEDURAL COMPLICATION
     Dosage: 0.25 MG/KG, BOLUS, INTRAVENOUS, 0.125 UG/KG, MIN
     Route: 042
  4. EPTIFIBATIDE (EPTIFIBATIDE) [Suspect]
     Indication: ANGIOGRAM
     Dosage: 180 UG/KG, BOLUS, INTRAVENOUS, 2 UG/KG, MIN
     Route: 042
  5. EPTIFIBATIDE (EPTIFIBATIDE) [Suspect]
     Indication: PROCEDURAL COMPLICATION
     Dosage: 180 UG/KG, BOLUS, INTRAVENOUS, 2 UG/KG, MIN
     Route: 042
  6. ASPIRIN [Suspect]
     Dosage: 325 MG
  7. CLOPIDOGREL [Suspect]
     Dosage: 300 TO 600 MG, LOADING DOSE, 75 MG, QD

REACTIONS (6)
  - CARDIAC DISORDER [None]
  - CEREBROVASCULAR ACCIDENT [None]
  - HAEMORRHAGE [None]
  - INJECTION SITE INJURY [None]
  - MYOCARDIAL INFARCTION [None]
  - RENAL FAILURE [None]
